FAERS Safety Report 6612566-1 (Version None)
Quarter: 2010Q1

REPORT INFORMATION
  Report Type: 
  Country: None (occurrence: None)
  Receive Date: 20100303
  Receipt Date: 20100219
  Transmission Date: 20100710
  Serious: Yes (Life-Threatening, Hospitalization)
  Sender: FDA-Public Use
  Company Number: US-JNJFOC-20100210346

PATIENT
  Age: 3 Year
  Sex: Female

DRUGS (2)
  1. TYLENOL-500 [Suspect]
     Route: 048
  2. TYLENOL-500 [Suspect]
     Indication: PYREXIA
     Dosage: 80 OR 160 MG CHEWABLE TABLETS
     Route: 048

REACTIONS (17)
  - ACIDOSIS [None]
  - ACUTE HEPATIC FAILURE [None]
  - CARDIAC FAILURE [None]
  - CARDIOMYOPATHY [None]
  - COAGULOPATHY [None]
  - DRUG TOXICITY [None]
  - ENCEPHALOPATHY [None]
  - GENERAL PHYSICAL HEALTH DETERIORATION [None]
  - HEPATIC NECROSIS [None]
  - LABILE BLOOD PRESSURE [None]
  - LETHARGY [None]
  - METABOLIC DISORDER [None]
  - MYOCARDITIS [None]
  - NAUSEA [None]
  - RENAL FAILURE [None]
  - RESPIRATORY DISTRESS [None]
  - VOMITING [None]
